FAERS Safety Report 8043603 (Version 6)
Quarter: 2016Q1

REPORT INFORMATION
  Report Type: Report from Study
  Country: DE (occurrence: DE)
  Receive Date: 20110719
  Receipt Date: 20160122
  Transmission Date: 20160526
  Serious: Yes (Death, Hospitalization, Other)
  Sender: FDA-Public Use
  Company Number: DE-PFIZER INC-2011158485

PATIENT
  Age: 48 Year
  Sex: Male
  Weight: 100 kg

DRUGS (2)
  1. SUNITINIB MALATE. [Suspect]
     Active Substance: SUNITINIB MALATE
     Indication: METASTATIC RENAL CELL CARCINOMA
     Dosage: 50 MG, 28 DAYS INTAKE/14 DAYS PAUSE
     Route: 048
     Dates: start: 20101110, end: 20110605
  2. PARACETAMOL [Concomitant]
     Active Substance: ACETAMINOPHEN
     Dosage: AS NEEDED

REACTIONS (7)
  - Abdominal pain upper [Not Recovered/Not Resolved]
  - Cholestasis [Recovered/Resolved]
  - Erosive oesophagitis [Recovered/Resolved]
  - Jaundice [Unknown]
  - Disease progression [Fatal]
  - Metastatic renal cell carcinoma [Fatal]
  - Haematemesis [Unknown]

NARRATIVE: CASE EVENT DATE: 20110606
